FAERS Safety Report 9188223 (Version 3)
Quarter: 2013Q2

REPORT INFORMATION
  Report Type: Report from Study
  Country: FR (occurrence: FR)
  Receive Date: 20130325
  Receipt Date: 20130508
  Transmission Date: 20140414
  Serious: Yes (Hospitalization)
  Sender: FDA-Public Use
  Company Number: FR-CELGENEUS-056-50794-13031933

PATIENT
  Age: 70 Year
  Sex: Male

DRUGS (5)
  1. VIDAZA [Suspect]
     Indication: ACUTE MYELOID LEUKAEMIA
     Dosage: 32 MILLIGRAM/SQ. METER
     Route: 041
     Dates: start: 20120726, end: 20120730
  2. VIDAZA [Suspect]
     Dosage: 32 MILLIGRAM/SQ. METER
     Route: 041
     Dates: start: 20130202, end: 20130206
  3. ZELITREX [Concomitant]
     Indication: PRODUCT USED FOR UNKNOWN INDICATION
     Dosage: 1 GRAM
     Route: 065
  4. NEORAL [Concomitant]
     Indication: PRODUCT USED FOR UNKNOWN INDICATION
     Dosage: 60 MILLIGRAM
     Route: 048
  5. HYDROCORTISONE [Concomitant]
     Indication: PRODUCT USED FOR UNKNOWN INDICATION
     Dosage: 60 MILLIGRAM
     Route: 041

REACTIONS (1)
  - Pericarditis infective [Recovered/Resolved]
